FAERS Safety Report 6190232-7 (Version None)
Quarter: 2009Q2

REPORT INFORMATION
  Report Type: 
  Country: None (occurrence: None)
  Receive Date: 20090514
  Receipt Date: 20090512
  Transmission Date: 20091009
  Serious: Yes (Other)
  Sender: FDA-Public Use
  Company Number: A0778877A

PATIENT
  Age: 43 Year
  Sex: Female

DRUGS (1)
  1. ALLI [Suspect]
     Route: 048

REACTIONS (5)
  - FLATULENCE [None]
  - GASTROINTESTINAL PAIN [None]
  - MALAISE [None]
  - NEPHROLITHIASIS [None]
  - POLLAKIURIA [None]
